FAERS Safety Report 6102065-8 (Version None)
Quarter: 2009Q1

REPORT INFORMATION
  Report Type: 
  Country: None (occurrence: None)
  Receive Date: 20090303
  Receipt Date: 20090303
  Transmission Date: 20090719
  Serious: Yes (Life-Threatening)
  Sender: FDA-Public Use
  Company Number: None

PATIENT
  Age: 45 Year
  Sex: Female
  Weight: 88.4514 kg

DRUGS (2)
  1. CIPRO [Suspect]
     Indication: INFECTION
     Dosage: 1 2 TIMES DAILY PO ONE DOSE, 500 MG.
     Route: 048
     Dates: start: 20090301, end: 20090301
  2. CIPRO [Suspect]
     Indication: NEPHROLITHIASIS
     Dosage: 1 2 TIMES DAILY PO ONE DOSE, 500 MG.
     Route: 048
     Dates: start: 20090301, end: 20090301

REACTIONS (4)
  - DYSPNOEA [None]
  - FORMICATION [None]
  - HYPOAESTHESIA ORAL [None]
  - PRURITUS [None]
